FAERS Safety Report 24544650 (Version 1)
Quarter: 2024Q4

REPORT INFORMATION
  Report Type: Report from Study
  Country: DE (occurrence: DE)
  Receive Date: 20241024
  Receipt Date: 20241024
  Transmission Date: 20250115
  Serious: Yes (Hospitalization)
  Sender: PFIZER
  Company Number: DE-ABBVIE-5959172

PATIENT
  Age: 74 Year
  Sex: Female

DRUGS (5)
  1. METHOTREXATE SODIUM [Suspect]
     Active Substance: METHOTREXATE SODIUM
     Indication: Rheumatoid arthritis
     Dosage: START DATE: BEFORE 28MAR2017
     Route: 065
  2. METHOTREXATE SODIUM [Suspect]
     Active Substance: METHOTREXATE SODIUM
     Dosage: STOP DATE:BETWEEN 08DEC2022 AND 07MAR2023START DATE:BETWEEN 08DEC2022 AND07MAR2023
     Route: 065
  3. METHOTREXATE SODIUM [Suspect]
     Active Substance: METHOTREXATE SODIUM
     Dosage: STOP DATE:BETWEEN 18SEP2023 AND12FEB2024START DATE:BETWEEN 18SEP2023 AND12FEB2024
     Route: 065
  4. RINVOQ [Suspect]
     Active Substance: UPADACITINIB
     Indication: Rheumatoid arthritis
     Route: 048
     Dates: start: 202102, end: 202212
  5. LEFLUNOMIDE [Concomitant]
     Active Substance: LEFLUNOMIDE
     Route: 065

REACTIONS (10)
  - Osteoarthritis [Recovered/Resolved]
  - Spinal osteoarthritis [Recovered/Resolved]
  - Renal function test abnormal [Recovered/Resolved]
  - Chronic kidney disease [Recovered/Resolved]
  - Kidney duplex [Unknown]
  - Bone fragmentation [Unknown]
  - Rotator cuff syndrome [Unknown]
  - Joint effusion [Unknown]
  - Diarrhoea [Unknown]
  - Vertigo [Unknown]

NARRATIVE: CASE EVENT DATE: 20230912
